FAERS Safety Report 20000163 (Version 1)
Quarter: 2021Q4

REPORT INFORMATION
  Report Type: Spontaneous
  Country: DE (occurrence: DE)
  Receive Date: 20211027
  Receipt Date: 20211027
  Transmission Date: 20220303
  Serious: Yes (Hospitalization, Congenital Anomaly)
  Sender: FDA-Public Use
  Company Number: DE-EMBRYOTOX-202102726

PATIENT
  Age: 1 Day
  Sex: Male
  Weight: 4.68 kg

DRUGS (4)
  1. LEVETIRACETAM [Suspect]
     Active Substance: LEVETIRACETAM
     Indication: Product used for unknown indication
     Dosage: 3000 [MG/D ] 2 SEPARATED DOSES
     Route: 064
     Dates: start: 20200607, end: 20210301
  2. LAMOTRIGINE [Suspect]
     Active Substance: LAMOTRIGINE
     Indication: Product used for unknown indication
     Dosage: 350 [MG/D ]/ 200-0-150MG DAILY
     Route: 064
     Dates: start: 20200607, end: 20210301
  3. LEVOTHYROXINE SODIUM [Concomitant]
     Active Substance: LEVOTHYROXINE SODIUM
     Indication: Product used for unknown indication
     Route: 064
     Dates: start: 20200607, end: 20210301
  4. METFORMIN [Concomitant]
     Active Substance: METFORMIN HYDROCHLORIDE
     Indication: Product used for unknown indication
     Route: 064
     Dates: start: 20200607, end: 20210301

REACTIONS (9)
  - Large for dates baby [Recovered/Resolved]
  - Oxygen saturation decreased [Recovered/Resolved]
  - Patent ductus arteriosus [Recovered/Resolved]
  - Bradycardia neonatal [Recovered/Resolved]
  - Infantile apnoea [Recovered/Resolved]
  - Neonatal tachypnoea [Recovered/Resolved]
  - Cardiac septal hypertrophy [Unknown]
  - Atrial septal defect [Unknown]
  - Foetal exposure during pregnancy [Unknown]

NARRATIVE: CASE EVENT DATE: 20210301
